FAERS Safety Report 8603538-6 (Version None)
Quarter: 2012Q3

REPORT INFORMATION
  Report Type: 
  Country: None (occurrence: None)
  Receive Date: 20120817
  Receipt Date: 20120816
  Transmission Date: 20120928
  Serious: Yes (Hospitalization, Other)
  Sender: FDA-Public Use
  Company Number: US-PFIZER INC-2012188854

PATIENT
  Age: 58 Year
  Sex: Female
  Weight: 49.433 kg

DRUGS (7)
  1. ZOLOFT [Suspect]
     Indication: ANXIETY
     Dosage: 50 MG, DAILY
     Route: 048
     Dates: start: 20111001, end: 20111201
  2. ZOLOFT [Suspect]
     Indication: DEPRESSION
     Dosage: UNK
     Route: 048
     Dates: start: 20111201
  3. XANAX [Suspect]
     Indication: ANXIETY
     Dosage: 2 MG, AS NEEDED (USUALLY SHE TOOK IT AT 2MG TWO TIMES A DAY)
     Route: 048
     Dates: start: 19900101, end: 20111201
  4. ABILIFY [Concomitant]
     Indication: DEPRESSION
  5. ABILIFY [Concomitant]
     Indication: ANXIETY
     Dosage: 2 MG, DAILY
     Dates: start: 20120701
  6. XANAX [Suspect]
     Indication: DEPRESSION
     Dosage: 2 MG, AS NEEDED
     Route: 048
     Dates: start: 20111201
  7. HYDROCHLOROTHIAZIDE AND LISINOPRIL [Concomitant]
     Indication: HYPERTENSION
     Dosage: 25/20 MG, UNK
     Dates: start: 20090201

REACTIONS (12)
  - FEELING ABNORMAL [None]
  - GENERAL PHYSICAL HEALTH DETERIORATION [None]
  - ANXIETY [None]
  - BLADDER PROLAPSE [None]
  - NAUSEA [None]
  - UTERINE CANCER [None]
  - VOMITING [None]
  - BLADDER DILATATION [None]
  - UTERINE ENLARGEMENT [None]
  - PAIN [None]
  - DEPRESSION [None]
  - UTERINE PROLAPSE [None]
